FAERS Safety Report 20503703 (Version 1)
Quarter: 2022Q1

REPORT INFORMATION
  Report Type: Spontaneous
  Country: US (occurrence: None)
  Receive Date: 20220221
  Receipt Date: 20220221
  Transmission Date: 20220423
  Serious: Yes (unspecified)
  Sender: FDA-Public Use
  Company Number: None

PATIENT
  Age: 32 Year
  Sex: Female
  Weight: 58.5 kg

DRUGS (1)
  1. FLUTICASONE PROPIONATE [Suspect]
     Active Substance: FLUTICASONE PROPIONATE
     Indication: Sinonasal obstruction
     Dosage: OTHER STRENGTH : MCG;?OTHER QUANTITY : 1 SPRAY(S);?FREQUENCY : TWICE A DAY;?OTHER ROUTE : EACH NOSTR
     Route: 050
     Dates: start: 20220217, end: 20220220

REACTIONS (12)
  - Thinking abnormal [None]
  - Anxiety [None]
  - Suicidal ideation [None]
  - Paranoia [None]
  - Feeling jittery [None]
  - Tachyphrenia [None]
  - Insomnia [None]
  - Panic attack [None]
  - Sleep disorder [None]
  - Tremor [None]
  - Allergic reaction to excipient [None]
  - Emotional distress [None]

NARRATIVE: CASE EVENT DATE: 20220219
